FAERS Safety Report 8355052-3 (Version None)
Quarter: 2012Q2

REPORT INFORMATION
  Report Type: 
  Country: None (occurrence: None)
  Receive Date: 20120511
  Receipt Date: 20110502
  Transmission Date: 20120825
  Serious: No
  Sender: FDA-Public Use
  Company Number: US-TEVA-2011002203

PATIENT
  Sex: Female
  Weight: 90.8 kg

DRUGS (4)
  1. LYRICA [Concomitant]
  2. NUVIGIL [Suspect]
     Indication: SEDATION
     Route: 048
     Dates: start: 20110418
  3. CYMBALTA [Concomitant]
  4. DIFLUCAN [Concomitant]

REACTIONS (2)
  - MUSCLE SPASMS [None]
  - PAIN IN EXTREMITY [None]
